FAERS Safety Report 10475329 (Version 1)
Quarter: 2014Q3

REPORT INFORMATION
  Report Type: Spontaneous
  Country: US (occurrence: US)
  Receive Date: 20140925
  Receipt Date: 20140925
  Transmission Date: 20150326
  Serious: No
  Sender: FDA-Public Use
  Company Number: US-VIIV HEALTHCARE LIMITED-A1081097A

PATIENT
  Sex: Female

DRUGS (2)
  1. SELZENTRY [Suspect]
     Active Substance: MARAVIROC
     Indication: HIV INFECTION
     Route: 065
  2. HIV TREATMENTS (UNSPECIFIED) [Concomitant]
     Indication: HIV INFECTION
     Route: 065

REACTIONS (2)
  - Paraesthesia [Recovered/Resolved]
  - Pruritus [Recovered/Resolved]
